FAERS Safety Report 11620642 (Version 4)
Quarter: 2015Q4

REPORT INFORMATION
  Report Type: Spontaneous
  Country: US (occurrence: US)
  Receive Date: 20151012
  Receipt Date: 20151216
  Transmission Date: 20160304
  Serious: No
  Sender: FDA-Public Use
  Company Number: US-PFIZER INC-2015326431

PATIENT
  Age: 66 Year
  Sex: Female
  Weight: 68 kg

DRUGS (3)
  1. ADVIL PM [Suspect]
     Active Substance: DIPHENHYDRAMINE CITRATE\IBUPROFEN
     Indication: SLEEP DISORDER
     Dosage: 2 DF, 1X/DAY AT BEDTIME
     Dates: start: 201510
  2. ADVIL PM [Suspect]
     Active Substance: DIPHENHYDRAMINE CITRATE\IBUPROFEN
     Indication: BACK PAIN
  3. ADVIL [Concomitant]
     Active Substance: IBUPROFEN
     Dosage: 20 MG, UNK

REACTIONS (4)
  - Drug ineffective [Not Recovered/Not Resolved]
  - Product formulation issue [Not Recovered/Not Resolved]
  - Intentional product use issue [Not Recovered/Not Resolved]
  - Overdose [Not Recovered/Not Resolved]
